FAERS Safety Report 22160374 (Version 1)
Quarter: 2023Q1

REPORT INFORMATION
  Report Type: Other
  Country: US (occurrence: None)
  Receive Date: 20230331
  Receipt Date: 20230331
  Transmission Date: 20230417
  Serious: Yes (Other)
  Sender: FDA-Public Use
  Company Number: US-ROCHE-3320977

PATIENT
  Age: 76 Year
  Sex: Female

DRUGS (1)
  1. RITUXAN [Suspect]
     Active Substance: RITUXIMAB
     Indication: Rheumatoid arthritis
     Dosage: INFUSE 1000MG INTRAVENOUSLY ON DAY(S) 0 AND DAY(S) 14 THEN REPEAT AS DIRECTED
     Route: 042

REACTIONS (5)
  - Colon cancer [Unknown]
  - Myalgia [Unknown]
  - Inflammation [Unknown]
  - Dyspnoea [Unknown]
  - Osteoporosis [Unknown]
